FAERS Safety Report 7892711-0 (Version None)
Quarter: 2011Q4

REPORT INFORMATION
  Report Type: 
  Country: None (occurrence: None)
  Receive Date: 20111104
  Receipt Date: 20111025
  Transmission Date: 20120403
  Serious: Yes (Other)
  Sender: FDA-Public Use
  Company Number: US-EISAI INC-E7389-01699-SPO-US

PATIENT
  Age: 63 Year
  Sex: Female
  Weight: 106 kg

DRUGS (1)
  1. HALAVEN [Suspect]
     Route: 042
     Dates: start: 20111005

REACTIONS (1)
  - EXTRAVASATION [None]
